FAERS Safety Report 10886028 (Version 3)
Quarter: 2018Q2

REPORT INFORMATION
  Report Type: Report from Study
  Country: US (occurrence: US)
  Receive Date: 20150304
  Receipt Date: 20180423
  Transmission Date: 20180711
  Serious: Yes (Other)
  Sender: FDA-Public Use
  Company Number: US-SANOFI-AVENTIS-2013SA063234

PATIENT
  Age: 40 Year
  Sex: Male

DRUGS (4)
  1. AUBAGIO [Suspect]
     Active Substance: TERIFLUNOMIDE
     Indication: MULTIPLE SCLEROSIS
     Route: 048
     Dates: end: 20160101
  2. AUBAGIO [Suspect]
     Active Substance: TERIFLUNOMIDE
     Indication: MULTIPLE SCLEROSIS
     Dosage: TAKEN FROM: MAY OR JUN 2013
     Route: 048
     Dates: start: 20130507
  3. AUBAGIO [Suspect]
     Active Substance: TERIFLUNOMIDE
     Indication: MULTIPLE SCLEROSIS
     Route: 048
     Dates: start: 20131008, end: 20140131
  4. AUBAGIO [Suspect]
     Active Substance: TERIFLUNOMIDE
     Indication: MULTIPLE SCLEROSIS
     Route: 048

REACTIONS (16)
  - Mental disorder [Not Recovered/Not Resolved]
  - Hypokinesia [Recovered/Resolved]
  - Hypoacusis [Unknown]
  - Band sensation [Not Recovered/Not Resolved]
  - Diarrhoea [Recovered/Resolved]
  - Suicidal ideation [Unknown]
  - Paraesthesia [Unknown]
  - General physical health deterioration [Not Recovered/Not Resolved]
  - Dysgraphia [Unknown]
  - Multiple sclerosis relapse [Unknown]
  - Anxiety [Recovering/Resolving]
  - Vomiting [Recovered/Resolved]
  - Drug dose omission [Unknown]
  - Depression [Recovering/Resolving]
  - Food poisoning [Recovered/Resolved]
  - Hyperhidrosis [Recovered/Resolved]

NARRATIVE: CASE EVENT DATE: 201406
